FAERS Safety Report 10890094 (Version 1)
Quarter: 2015Q1

REPORT INFORMATION
  Report Type: Spontaneous
  Country: IT (occurrence: IT)
  Receive Date: 20150305
  Receipt Date: 20150305
  Transmission Date: 20150721
  Serious: Yes (Hospitalization)
  Sender: FDA-Public Use
  Company Number: IT-TEVA-543533ACC

PATIENT
  Age: 82 Year
  Sex: Male

DRUGS (3)
  1. ALPRAZOLAM. [Concomitant]
     Active Substance: ALPRAZOLAM
     Indication: PRODUCT USED FOR UNKNOWN INDICATION
     Dosage: 1 DF
     Route: 048
  2. CARDIRENE - 160 MG POLVERE PER SOLUZIONE ORALE - SANOFI S.P.A. [Interacting]
     Active Substance: ASPIRIN DL-LYSINE
     Indication: CEREBROVASCULAR DISORDER
     Dosage: 160 MG DAILY
     Route: 048
     Dates: start: 20100101, end: 20150127
  3. SERTRALINE HYDROCHLORIDE. [Suspect]
     Active Substance: SERTRALINE HYDROCHLORIDE
     Indication: PRODUCT USED FOR UNKNOWN INDICATION
     Dosage: 50 MG DAILY
     Route: 048
     Dates: start: 20140101, end: 20150127

REACTIONS (3)
  - Asthenia [Recovered/Resolved]
  - Drug interaction [Recovered/Resolved]
  - Gastritis [Recovered/Resolved]

NARRATIVE: CASE EVENT DATE: 20150113
